FAERS Safety Report 10832122 (Version 1)
Quarter: 2015Q1

REPORT INFORMATION
  Report Type: Spontaneous
  Country: US (occurrence: US)
  Receive Date: 20150219
  Receipt Date: 20150219
  Transmission Date: 20150721
  Serious: Yes (Other)
  Sender: FDA-Public Use
  Company Number: US-GLAXOSMITHKLINE-US2015021185

PATIENT
  Sex: Female

DRUGS (1)
  1. ADVAIR DISKUS [Suspect]
     Active Substance: FLUTICASONE PROPIONATE\SALMETEROL XINAFOATE
     Indication: PRODUCT USED FOR UNKNOWN INDICATION
     Dosage: UNK, U

REACTIONS (6)
  - Myocardial infarction [Unknown]
  - Drug administration error [Unknown]
  - Exercise tolerance decreased [Unknown]
  - Tendon rupture [Unknown]
  - Asthenia [Unknown]
  - Ligament rupture [Not Recovered/Not Resolved]
